FAERS Safety Report 6424815-3 (Version None)
Quarter: 2009Q4

REPORT INFORMATION
  Report Type: 
  Country: None (occurrence: None)
  Receive Date: 20091103
  Receipt Date: 20091020
  Transmission Date: 20100525
  Serious: Yes (Hospitalization, Other)
  Sender: FDA-Public Use
  Company Number: PHHY2009GB21146

PATIENT
  Sex: Female

DRUGS (9)
  1. CLOZARIL [Suspect]
     Indication: SCHIZOPHRENIA
     Dosage: 550 MG/DAY
     Route: 048
     Dates: start: 20030908, end: 20090517
  2. CLOZARIL [Suspect]
     Dosage: UNK
     Dates: start: 20090529
  3. HALOPERIDOL [Concomitant]
  4. MORPHINE [Concomitant]
  5. MIDAZOLAM HCL [Concomitant]
     Dosage: UNK
  6. DEPAKOTE [Concomitant]
     Dosage: 1500 MG/DAILY
     Route: 048
  7. AMISULPRIDE [Concomitant]
     Dosage: 400 MG/DAILY
     Route: 048
  8. AMLODIPINE [Concomitant]
     Dosage: 5 MG/DAILY
     Route: 048
  9. SERETIDE ^ALLEN + HANBURYS LTD^ [Concomitant]

REACTIONS (5)
  - AGGRESSION [None]
  - CHRONIC OBSTRUCTIVE PULMONARY DISEASE [None]
  - FOOT FRACTURE [None]
  - LOWER RESPIRATORY TRACT INFECTION [None]
  - RESPIRATORY FAILURE [None]
